FAERS Safety Report 25338055 (Version 1)
Quarter: 2025Q2

REPORT INFORMATION
  Report Type: Spontaneous
  Country: US (occurrence: US)
  Receive Date: 20250520
  Receipt Date: 20250520
  Transmission Date: 20250717
  Serious: Yes (Other)
  Sender: PFIZER
  Company Number: US-PFIZER INC-202500103355

PATIENT
  Age: 85 Year
  Sex: Female

DRUGS (11)
  1. INLYTA [Suspect]
     Active Substance: AXITINIB
     Dosage: ONE 5MG TABLET ORALLY DAILY
     Route: 048
     Dates: end: 20250422
  2. AMLODIPINE [Concomitant]
     Active Substance: AMLODIPINE BESYLATE
  3. CALCIUM CARBONATE\CHOLECALCIFEROL [Concomitant]
     Active Substance: CALCIUM CARBONATE\CHOLECALCIFEROL
  4. EDARBYCLOR [Concomitant]
     Active Substance: AZILSARTAN KAMEDOXOMIL\CHLORTHALIDONE
  5. ELIQUIS [Concomitant]
     Active Substance: APIXABAN
  6. LABETALOL [Concomitant]
     Active Substance: LABETALOL
  7. OPDUALAG [Concomitant]
     Active Substance: NIVOLUMAB\RELATLIMAB-RMBW
  8. PRAVASTATIN [Concomitant]
     Active Substance: PRAVASTATIN
  9. PROLIA [Concomitant]
     Active Substance: DENOSUMAB
  10. SYNTHROID [Concomitant]
     Active Substance: LEVOTHYROXINE SODIUM
  11. ZETIA [Concomitant]
     Active Substance: EZETIMIBE

REACTIONS (8)
  - Malignant neoplasm progression [Recovering/Resolving]
  - Rash [Recovering/Resolving]
  - Dermatitis acneiform [Recovering/Resolving]
  - Nail disorder [Recovering/Resolving]
  - Stomatitis [Recovering/Resolving]
  - Insomnia [Recovering/Resolving]
  - Asthenia [Recovering/Resolving]
  - Fatigue [Recovering/Resolving]
